FAERS Safety Report 7081835-6 (Version None)
Quarter: 2010Q4

REPORT INFORMATION
  Report Type: 
  Country: None (occurrence: None)
  Receive Date: 20101103
  Receipt Date: 20101028
  Transmission Date: 20110411
  Serious: Yes (Death, Life-Threatening, Hospitalization)
  Sender: FDA-Public Use
  Company Number: JP-ELI_LILLY_AND_COMPANY-JP201009002697

PATIENT
  Sex: Male
  Weight: 56 kg

DRUGS (2)
  1. GEMZAR [Suspect]
     Indication: LUNG SQUAMOUS CELL CARCINOMA STAGE IV
     Dosage: 1500 MG, UNK
     Route: 042
     Dates: start: 20100903, end: 20100903
  2. DECADRON /00016002/ [Concomitant]
     Indication: PROPHYLAXIS
     Dosage: 6.6 MG, DAILY (1/D)
     Route: 042
     Dates: start: 20100903, end: 20100903

REACTIONS (5)
  - CARDIAC TAMPONADE [None]
  - DISSEMINATED INTRAVASCULAR COAGULATION [None]
  - LOSS OF CONSCIOUSNESS [None]
  - LUNG NEOPLASM MALIGNANT [None]
  - TOXIC EPIDERMAL NECROLYSIS [None]
